FAERS Safety Report 9460562 (Version 1)
Quarter: 2013Q3

REPORT INFORMATION
  Report Type: Report from Study
  Country: US (occurrence: US)
  Receive Date: 20130815
  Receipt Date: 20130815
  Transmission Date: 20140515
  Serious: Yes (Hospitalization)
  Sender: FDA-Public Use
  Company Number: US-009507513-1308USA006335

PATIENT
  Age: 18 Year
  Sex: 0

DRUGS (9)
  1. TEMODAR [Suspect]
     Dosage: 150 MG/M2, DAY ON DAYS 1 TO 5, IT WAS ALLOWED TO OPEN THEM AND MIX WITH APPLE SAUCE OR JUICE
     Route: 048
  2. TEMODAR [Suspect]
     Dosage: 100 MG/M2, DAY
     Route: 048
  3. BEVACIZUMAB [Suspect]
     Indication: NEOPLASM
     Dosage: 15 MG/KG, (MAXIMUN DOSE 800MG) ADMINISTERED OVER 90 MIN ON DAY 1
  4. BEVACIZUMAB [Suspect]
     Indication: BRAIN NEOPLASM
  5. VINCRISTINE SULFATE [Suspect]
     Indication: NEOPLASM
     Dosage: 1.5 MG/M2, OVER 1 MINUTE ON DAY 1 (MAXIMUM 2 MG)
     Route: 042
  6. VINCRISTINE SULFATE [Suspect]
     Indication: BRAIN NEOPLASM
  7. IRINOTECAN HYDROCHLORIDE [Suspect]
     Indication: NEOPLASM
     Dosage: 90 MG/M2, 1 TO 5 INDILUENT OR MIXED TO MASK
     Route: 048
  8. IRINOTECAN HYDROCHLORIDE [Suspect]
     Indication: BRAIN NEOPLASM
  9. CEFIXIME [Concomitant]
     Indication: PROPHYLAXIS AGAINST DIARRHOEA
     Dosage: 8 MG/KG, DAILY (MAXIMUM 400MG)  FOR 10MDAYS STARTING 2 DAYS BEFORE EACH CHEMOTHERAPY CYCLE

REACTIONS (1)
  - Abdominal pain [Unknown]
